FAERS Safety Report 21448690 (Version 1)
Quarter: 2022Q4

REPORT INFORMATION
  Report Type: Spontaneous
  Country: NL (occurrence: NL)
  Receive Date: 20221013
  Receipt Date: 20221013
  Transmission Date: 20230112
  Serious: Yes (Other)
  Sender: FDA-Public Use
  Company Number: NL-SUN PHARMACEUTICAL INDUSTRIES LTD-2022RR-358087

PATIENT
  Sex: Male
  Weight: 100 kg

DRUGS (1)
  1. ROSUVASTATIN [Suspect]
     Active Substance: ROSUVASTATIN
     Indication: Hypercholesterolaemia
     Dosage: 5 MILLIGRAM, BID
     Route: 065
     Dates: start: 20190801

REACTIONS (2)
  - Rhabdomyolysis [Recovered/Resolved]
  - Asthenia [Recovered/Resolved]
